FAERS Safety Report 24279672 (Version 1)
Quarter: 2024Q3

REPORT INFORMATION
  Report Type: Spontaneous
  Country: US (occurrence: None)
  Receive Date: 20240904
  Receipt Date: 20240904
  Transmission Date: 20241017
  Serious: Yes (Other)
  Sender: ASTRAZENECA
  Company Number: 2024A195769

PATIENT
  Sex: Female

DRUGS (4)
  1. SEROQUEL [Suspect]
     Active Substance: QUETIAPINE FUMARATE
     Indication: Insomnia
     Route: 048
     Dates: start: 2020, end: 2020
  2. SEROQUEL [Suspect]
     Active Substance: QUETIAPINE FUMARATE
     Indication: Insomnia
     Route: 048
     Dates: start: 202407, end: 2024
  3. CARBAMAZEPINE [Suspect]
     Active Substance: CARBAMAZEPINE
  4. MELATONIN [Concomitant]
     Active Substance: MELATONIN

REACTIONS (13)
  - Dysarthria [Unknown]
  - Delirium [Unknown]
  - Agitation [Unknown]
  - Dementia [Unknown]
  - Personality disorder [Unknown]
  - Hallucination [Unknown]
  - Personality change [Unknown]
  - Fatigue [Unknown]
  - Hypersensitivity [Unknown]
  - Drug withdrawal syndrome [Unknown]
  - Product use in unapproved indication [Unknown]
  - Product use issue [Unknown]
  - Off label use [Unknown]
